FAERS Safety Report 8850644 (Version 2)
Quarter: 2012Q4

REPORT INFORMATION
  Report Type: 
  Country: JP (occurrence: JP)
  Receive Date: 20121019
  Receipt Date: 20121025
  Transmission Date: 20130627
  Serious: Yes (Other)
  Sender: FDA-Public Use
  Company Number: JP-009507513-1210JPN008503

PATIENT
  Age: 73 Year
  Sex: Female

DRUGS (5)
  1. JANUVIA TABLETS 50MG [Suspect]
     Dosage: 50 mg, qd
     Route: 048
     Dates: end: 20120701
  2. RIZE [Suspect]
     Dosage: Daily dosage unknown
     Route: 048
  3. NORVASC [Suspect]
     Dosage: Daily dosage unknown
     Route: 048
  4. PURSENNID [Suspect]
     Dosage: Daily dosage unknown
     Route: 048
  5. OMEPRAZOLE [Suspect]
     Dosage: Daily dosage unknown

REACTIONS (3)
  - Coma [Recovered/Resolved]
  - Hypoglycaemia [Recovered/Resolved]
  - Renal impairment [Unknown]
